FAERS Safety Report 8927179 (Version 1)
Quarter: 2012Q4

REPORT INFORMATION
  Report Type: Report from Study
  Country: CA (occurrence: CA)
  Receive Date: 20121127
  Receipt Date: 20121127
  Transmission Date: 20130627
  Serious: Yes (Hospitalization)
  Sender: FDA-Public Use
  Company Number: CA-JNJFOC-20121108756

PATIENT
  Age: 23 Year
  Sex: Male
  Weight: 70.1 kg

DRUGS (1)
  1. REMICADE [Suspect]
     Indication: CROHN^S DISEASE
     Dosage: dose: 400 (unit unspecified)
     Route: 042
     Dates: start: 2010

REACTIONS (1)
  - Gastrointestinal disorder [Recovered/Resolved]
